FAERS Safety Report 7982377-3 (Version None)
Quarter: 2011Q4

REPORT INFORMATION
  Report Type: 
  Country: None (occurrence: None)
  Receive Date: 20111215
  Receipt Date: 20111205
  Transmission Date: 20120403
  Serious: Yes (Death, Other)
  Sender: FDA-Public Use
  Company Number: PHHY2011US108201

PATIENT
  Age: 59 Year
  Sex: Male

DRUGS (3)
  1. ETHANOL [Suspect]
  2. METOPROLOL TARTRATE [Suspect]
     Route: 048
  3. COCAINE [Suspect]

REACTIONS (11)
  - SUICIDAL IDEATION [None]
  - MYOGLOBIN BLOOD INCREASED [None]
  - ELECTROCARDIOGRAM ST-T CHANGE [None]
  - ASPARTATE AMINOTRANSFERASE INCREASED [None]
  - ALANINE AMINOTRANSFERASE INCREASED [None]
  - POISONING [None]
  - CARDIAC ARREST [None]
  - INTENTIONAL OVERDOSE [None]
  - ATRIAL FIBRILLATION [None]
  - UNRESPONSIVE TO STIMULI [None]
  - HYPOTENSION [None]
